FAERS Safety Report 7258899-X (Version None)
Quarter: 2011Q1

REPORT INFORMATION
  Report Type: 
  Country: None (occurrence: None)
  Receive Date: 20110129
  Receipt Date: 20100611
  Transmission Date: 20110831
  Serious: No
  Sender: FDA-Public Use
  Company Number: US-ABBOTT-10P-163-0651166-00

PATIENT
  Age: 56 Year
  Sex: Female

DRUGS (7)
  1. PREMPRO [Concomitant]
     Indication: HOT FLUSH
  2. HUMIRA [Suspect]
     Indication: RHEUMATOID ARTHRITIS
     Dates: start: 20100407
  3. FOLIC ACID [Concomitant]
     Indication: STOMATITIS
  4. B12 VITAMIN [Concomitant]
     Indication: PRODUCT USED FOR UNKNOWN INDICATION
  5. METHOTREXATE [Concomitant]
     Indication: RHEUMATOID ARTHRITIS
  6. MELOXICAM [Concomitant]
     Indication: RHEUMATOID ARTHRITIS
  7. PREMPRO [Concomitant]
     Indication: HORMONE REPLACEMENT THERAPY
     Dosage: 0.3/1.5

REACTIONS (3)
  - INJECTION SITE RASH [None]
  - INJECTION SITE PAIN [None]
  - INJECTION SITE PRURITUS [None]
